FAERS Safety Report 8550365-4 (Version None)
Quarter: 2012Q3

REPORT INFORMATION
  Report Type: 
  Country: None (occurrence: None)
  Receive Date: 20120730
  Receipt Date: 20120719
  Transmission Date: 20120928
  Serious: Yes (Hospitalization)
  Sender: FDA-Public Use
  Company Number: US-ASTRAZENECA-2012SE51459

PATIENT
  Age: 54 Year
  Sex: Male
  Weight: 99.8 kg

DRUGS (1)
  1. SYMBICORT [Suspect]
     Indication: PULMONARY SARCOIDOSIS
     Dosage: 160/4.5 AT UNKNOWN FREQUENCY
     Route: 055

REACTIONS (1)
  - DRUG DOSE OMISSION [None]
